FAERS Safety Report 8355405-3 (Version None)
Quarter: 2012Q2

REPORT INFORMATION
  Report Type: 
  Country: None (occurrence: None)
  Receive Date: 20120511
  Receipt Date: 20110411
  Transmission Date: 20120825
  Serious: No
  Sender: FDA-Public Use
  Company Number: US-TEVA-2011001759

PATIENT
  Sex: Male
  Weight: 87.168 kg

DRUGS (9)
  1. OMEPRAZOLE [Concomitant]
     Dates: start: 20080101
  2. CLONAZEPAM [Concomitant]
     Dates: start: 20110301
  3. NUVIGIL [Suspect]
     Indication: CIRCADIAN RHYTHM SLEEP DISORDER
     Dosage: 250 MILLIGRAM;
     Route: 048
     Dates: start: 20110404, end: 20110404
  4. VITAMIN D [Concomitant]
     Dates: start: 20080101
  5. SIMVASTATIN [Concomitant]
     Dates: start: 20090101
  6. MULTI-VITAMINS [Concomitant]
  7. FLUOXETINE [Concomitant]
     Dates: start: 20100101
  8. FISH OIL [Concomitant]
     Dates: start: 20080101
  9. LISINOPRIL [Concomitant]
     Dates: start: 20070101

REACTIONS (6)
  - DRY MOUTH [None]
  - DECREASED APPETITE [None]
  - NAUSEA [None]
  - DRUG INEFFECTIVE [None]
  - FEELING JITTERY [None]
  - TREMOR [None]
